FAERS Safety Report 4509476-2 (Version None)
Quarter: 2004Q4

REPORT INFORMATION
  Report Type: 
  Country: None (occurrence: None)
  Receive Date: 20041119
  Receipt Date: 20041109
  Transmission Date: 20050328
  Serious: Yes (Hospitalization)
  Sender: FDA-Public Use
  Company Number: 2004090030

PATIENT
  Sex: Male

DRUGS (3)
  1. GEODON [Suspect]
     Indication: ILL-DEFINED DISORDER
  2. DIPHENYDRAMINE HYDROCHLORIDE (DIPHENYDRAMINE HYDROCHLORIDE) [Suspect]
     Indication: ILL-DEFINED DISORDER
  3. ESCTIALOPRAM (ESCTIALOPRAM) [Suspect]
     Indication: ILL-DEFINED DISORDER

REACTIONS (3)
  - FATIGUE [None]
  - SEDATION [None]
  - SUICIDE ATTEMPT [None]
